FAERS Safety Report 6671861-0 (Version None)
Quarter: 2010Q2

REPORT INFORMATION
  Report Type: 
  Country: None (occurrence: None)
  Receive Date: 20100407
  Receipt Date: 20100331
  Transmission Date: 20101027
  Serious: Yes (Death)
  Sender: FDA-Public Use
  Company Number: US-GILEAD-2010-0028072

PATIENT
  Sex: Male

DRUGS (8)
  1. LETAIRIS [Suspect]
     Indication: COR PULMONALE CHRONIC
     Route: 048
     Dates: start: 20081120, end: 20100319
  2. LASIX [Concomitant]
  3. THEOPHYLLINE [Concomitant]
  4. OXANDROLONE [Concomitant]
  5. NEXIUM [Concomitant]
  6. ZANTAC [Concomitant]
  7. GAS-X W/MAALOX [Concomitant]
  8. AVODART [Concomitant]

REACTIONS (1)
  - RESPIRATORY FAILURE [None]
